FAERS Safety Report 10624556 (Version 1)
Quarter: 2014Q4

REPORT INFORMATION
  Report Type: Spontaneous
  Country: US (occurrence: US)
  Receive Date: 20141203
  Receipt Date: 20141203
  Transmission Date: 20150529
  Serious: Yes (Death, Other)
  Sender: FDA-Public Use
  Company Number: US-GLAXOSMITHKLINE-US2014GSK030526

PATIENT
  Age: 66 Year
  Sex: Male

DRUGS (2)
  1. VOTRIENT [Suspect]
     Active Substance: PAZOPANIB HYDROCHLORIDE
     Indication: RENAL CELL CARCINOMA
  2. VOTRIENT [Suspect]
     Active Substance: PAZOPANIB HYDROCHLORIDE
     Indication: MALIGNANT URINARY TRACT NEOPLASM
     Dosage: 800 MG, QD
     Route: 048
     Dates: start: 20140904

REACTIONS (6)
  - Functional gastrointestinal disorder [Unknown]
  - Metastases to lung [Unknown]
  - Metastases to bone [Unknown]
  - Death [Fatal]
  - Renal cancer metastatic [Unknown]
  - Pneumonia [Unknown]

NARRATIVE: CASE EVENT DATE: 20141005
